FAERS Safety Report 17719846 (Version 8)
Quarter: 2021Q3

REPORT INFORMATION
  Report Type: Report from Study
  Country: CA (occurrence: CA)
  Receive Date: 20200428
  Receipt Date: 20210913
  Transmission Date: 20211014
  Serious: Yes (Other)
  Sender: FDA-Public Use
  Company Number: PHHY2017CA064194

PATIENT
  Age: 79 Year
  Sex: Male

DRUGS (3)
  1. SANDOSTATIN LAR DEPOT [Suspect]
     Active Substance: OCTREOTIDE ACETATE
     Indication: CARCINOID TUMOUR
     Dosage: 20 MG, QMO
     Route: 030
     Dates: start: 20050804
  2. SANDOSTATIN LAR DEPOT [Suspect]
     Active Substance: OCTREOTIDE ACETATE
     Dosage: 30 MG, QMO
     Route: 030
     Dates: start: 20050804
  3. SANDOSTATIN LAR DEPOT [Suspect]
     Active Substance: OCTREOTIDE ACETATE
     Dosage: 30 MG, Q4W
     Route: 030
     Dates: start: 20150917

REACTIONS (9)
  - Bone pain [Unknown]
  - Blood pressure increased [Unknown]
  - Back pain [Unknown]
  - Body temperature abnormal [Unknown]
  - Rash [Unknown]
  - Pain [Unknown]
  - Urinary tract infection [Recovering/Resolving]
  - Blood pressure systolic increased [Unknown]
  - Anxiety [Unknown]

NARRATIVE: CASE EVENT DATE: 2016
